FAERS Safety Report 15657625 (Version 1)
Quarter: 2018Q4

REPORT INFORMATION
  Report Type: Spontaneous
  Country: US (occurrence: US)
  Receive Date: 20181126
  Receipt Date: 20181126
  Transmission Date: 20190205
  Serious: No
  Sender: FDA-Public Use
  Company Number: US-NOVOPROD-606501

PATIENT
  Age: 37 Year
  Sex: Female
  Weight: 83.9 kg

DRUGS (3)
  1. NOVOLOG MIX 70/30 [Suspect]
     Active Substance: INSULIN ASPART
     Indication: TYPE 2 DIABETES MELLITUS
     Dosage: 10 U, BID
     Route: 058
     Dates: start: 20180606, end: 20180610
  2. TRULICITY [Suspect]
     Active Substance: DULAGLUTIDE
     Indication: TYPE 2 DIABETES MELLITUS
     Dosage: 0.75 UNK, UNK
     Route: 058
     Dates: start: 20180610, end: 20180610
  3. NOVOLOG MIX 70/30 [Suspect]
     Active Substance: INSULIN ASPART
     Dosage: 5 U, BID
     Route: 058
     Dates: start: 20180606, end: 20180610

REACTIONS (5)
  - Urinary tract infection bacterial [Recovering/Resolving]
  - Blood glucose increased [Recovering/Resolving]
  - Vomiting [Recovered/Resolved]
  - Nausea [Recovered/Resolved]
  - Headache [Recovering/Resolving]

NARRATIVE: CASE EVENT DATE: 201806
